FAERS Safety Report 4427228-9 (Version None)
Quarter: 2004Q3

REPORT INFORMATION
  Report Type: 
  Country: None (occurrence: None)
  Receive Date: 20040817
  Receipt Date: 20040805
  Transmission Date: 20050211
  Serious: Yes (Other)
  Sender: FDA-Public Use
  Company Number: FR-JNJFOC-20040703270

PATIENT
  Sex: Female

DRUGS (5)
  1. BLINDED; INFLIXIMAB, RECOMBINANT [Suspect]
  2. BLINDED; INFLIXIMAB, RECOMBINANT [Suspect]
  3. BLINDED; INFLIXIMAB, RECOMBINANT [Suspect]
  4. BLINDED; INFLIXIMAB, RECOMBINANT [Suspect]
     Indication: CROHN'S DISEASE
  5. UNSPECIFIED BIOLOGIC AGENT [Concomitant]

REACTIONS (5)
  - HEPATIC NEOPLASM [None]
  - LUNG NEOPLASM [None]
  - PNEUMONIA PNEUMOCOCCAL [None]
  - SPLEEN DISORDER [None]
  - STREPTOCOCCAL ABSCESS [None]
